FAERS Safety Report 9306762 (Version 1)
Quarter: 2013Q2

REPORT INFORMATION
  Report Type: Other
  Country: IT (occurrence: IT)
  Receive Date: 20130523
  Receipt Date: 20130523
  Transmission Date: 20140414
  Serious: Yes (Life-Threatening)
  Sender: FDA-Public Use
  Company Number: IT-WATSON-2013-09532

PATIENT
  Age: 23 Year
  Sex: Female

DRUGS (4)
  1. CITALOPRAM HYDROBROMIDE (UNKNOWN) [Suspect]
     Indication: PRODUCT USED FOR UNKNOWN INDICATION
     Dosage: 15 ML, SINGLE
     Route: 048
     Dates: start: 20130416, end: 20130416
  2. CLOTIAZEPAM [Suspect]
     Indication: PRODUCT USED FOR UNKNOWN INDICATION
     Dosage: 20 ML, SINGLE
     Route: 048
     Dates: start: 20130416, end: 20130416
  3. LAROXYL [Suspect]
     Indication: PRODUCT USED FOR UNKNOWN INDICATION
     Dosage: 20 ML, SINGLE
     Route: 048
     Dates: start: 20130416, end: 20130416
  4. RIVOTRIL [Suspect]
     Indication: PRODUCT USED FOR UNKNOWN INDICATION
     Dosage: 10 ML, SINGLE
     Route: 048
     Dates: start: 20130416, end: 20130416

REACTIONS (3)
  - Coma [Recovered/Resolved]
  - Toxicity to various agents [Recovered/Resolved]
  - Overdose [Recovered/Resolved]
